FAERS Safety Report 7146288-8 (Version None)
Quarter: 2010Q4

REPORT INFORMATION
  Report Type: 
  Country: None (occurrence: None)
  Receive Date: 20101208
  Receipt Date: 20101129
  Transmission Date: 20110411
  Serious: Yes (Hospitalization)
  Sender: FDA-Public Use
  Company Number: US-SANOFI-AVENTIS-2010SA073263

PATIENT
  Sex: Male

DRUGS (2)
  1. AMBIEN [Suspect]
     Route: 048
     Dates: start: 20050101
  2. AMBIEN CR [Suspect]
     Route: 048
     Dates: start: 20050101

REACTIONS (1)
  - BLOOD GLUCOSE INCREASED [None]
